FAERS Safety Report 6339854-0 (Version None)
Quarter: 2009Q3

REPORT INFORMATION
  Report Type: 
  Country: None (occurrence: None)
  Receive Date: 20090903
  Receipt Date: 20090824
  Transmission Date: 20100115
  Serious: Yes (Other)
  Sender: FDA-Public Use
  Company Number: NL-TYCO HEALTHCARE/MALLINCKRODT-T200901607

PATIENT

DRUGS (1)
  1. OPTIRAY 350 [Suspect]
     Dosage: 80 ML, SINGLE
     Dates: start: 20090418, end: 20090418

REACTIONS (4)
  - MALAISE [None]
  - NAUSEA [None]
  - THROAT TIGHTNESS [None]
  - VOMITING [None]
